FAERS Safety Report 4863233-6 (Version None)
Quarter: 2005Q4

REPORT INFORMATION
  Report Type: 
  Country: None (occurrence: None)
  Receive Date: 20051219
  Receipt Date: 20051206
  Transmission Date: 20060501
  Serious: Yes (Other)
  Sender: FDA-Public Use
  Company Number: 2005165606

PATIENT
  Sex: Male

DRUGS (1)
  1. ZITHROMAX [Suspect]
     Indication: DYSPNOEA

REACTIONS (3)
  - COUGH [None]
  - DYSPNOEA [None]
  - PULMONARY CONGESTION [None]
